FAERS Safety Report 8215850-3 (Version None)
Quarter: 2012Q1

REPORT INFORMATION
  Report Type: 
  Country: None (occurrence: None)
  Receive Date: 20120316
  Receipt Date: 20120308
  Transmission Date: 20120608
  Serious: Yes (Other)
  Sender: FDA-Public Use
  Company Number: US-JNJFOC-20120300994

PATIENT
  Sex: Male
  Weight: 83.01 kg

DRUGS (12)
  1. PROPULSID [Suspect]
     Route: 048
     Dates: start: 20070209
  2. CIALIS [Concomitant]
     Indication: ERECTILE DYSFUNCTION
     Route: 065
  3. ZOFRAN [Concomitant]
     Indication: NAUSEA
     Route: 065
     Dates: start: 20070415
  4. PEPCID [Concomitant]
     Indication: DYSPEPSIA
     Route: 065
     Dates: start: 20091226
  5. MAGNESIUM HYDROXIDE TAB [Concomitant]
     Indication: DYSPEPSIA
     Route: 065
     Dates: start: 20091226
  6. PROPULSID [Suspect]
     Indication: GASTROOESOPHAGEAL REFLUX DISEASE
     Route: 048
     Dates: start: 20120209
  7. PRIMIDONE [Concomitant]
     Indication: ESSENTIAL TREMOR
     Route: 048
     Dates: start: 20111019, end: 20120215
  8. NEXIUM [Concomitant]
     Indication: GASTROOESOPHAGEAL REFLUX DISEASE
     Route: 065
     Dates: start: 20120123
  9. PROPULSID [Suspect]
     Route: 048
     Dates: start: 20070209
  10. KLONOPIN [Concomitant]
     Indication: INSOMNIA
     Route: 065
  11. SINGULAIR [Concomitant]
     Indication: SEASONAL ALLERGY
     Route: 065
  12. PROPULSID [Suspect]
     Indication: GASTROINTESTINAL MOTILITY DISORDER
     Route: 048
     Dates: start: 20120209

REACTIONS (1)
  - ELECTROCARDIOGRAM QT PROLONGED [None]
